FAERS Safety Report 5223017-6 (Version None)
Quarter: 2007Q1

REPORT INFORMATION
  Report Type: 
  Country: None (occurrence: None)
  Receive Date: 20070129
  Receipt Date: 20070118
  Transmission Date: 20070707
  Serious: Yes (Other)
  Sender: FDA-Public Use
  Company Number: DE-PFIZER INC-2006149113

PATIENT
  Sex: Female

DRUGS (3)
  1. LYRICA [Suspect]
     Indication: POLYNEUROPATHY
     Dosage: DAILY DOSE:225MG
     Route: 048
     Dates: start: 20060401, end: 20060101
  2. LYRICA [Suspect]
     Indication: MENOPAUSAL SYMPTOMS
  3. FEMARA [Concomitant]

REACTIONS (8)
  - AGITATION [None]
  - DIARRHOEA [None]
  - DRUG WITHDRAWAL SYNDROME [None]
  - HEADACHE [None]
  - HYPERHIDROSIS [None]
  - INFECTION [None]
  - NASAL MUCOSAL DISORDER [None]
  - SLEEP DISORDER [None]
